APPROVED DRUG PRODUCT: ARTHROTEC
Active Ingredient: DICLOFENAC SODIUM; MISOPROSTOL
Strength: 75MG;0.2MG
Dosage Form/Route: TABLET, DELAYED RELEASE;ORAL
Application: N020607 | Product #002 | TE Code: AB
Applicant: PFIZER INC
Approved: Dec 24, 1997 | RLD: Yes | RS: Yes | Type: RX